FAERS Safety Report 14854375 (Version 1)
Quarter: 2018Q2

REPORT INFORMATION
  Report Type: Spontaneous
  Country: None (occurrence: MX)
  Receive Date: 20180507
  Receipt Date: 20180507
  Transmission Date: 20180711
  Serious: Yes (Death)
  Sender: FDA-Public Use
  Company Number: MX-X-GEN PHARMACEUTICALS, INC-2047323

PATIENT
  Age: 55 Year
  Sex: Male
  Weight: 120 kg

DRUGS (1)
  1. COLISTIMETHATE SODIUM. [Suspect]
     Active Substance: COLISTIMETHATE SODIUM
     Indication: GENITOURINARY TRACT INFECTION
     Route: 042
     Dates: start: 20180314

REACTIONS (1)
  - Renal failure [Fatal]

NARRATIVE: CASE EVENT DATE: 20180318
